FAERS Safety Report 18514460 (Version 1)
Quarter: 2020Q4

REPORT INFORMATION
  Report Type: Spontaneous
  Country: US (occurrence: US)
  Receive Date: 20201117
  Receipt Date: 20201117
  Transmission Date: 20210114
  Serious: No
  Sender: FDA-Public Use
  Company Number: US-NALPROPION PHARMACEUTICALS INC.-2020-009470

PATIENT
  Age: 76 Year
  Sex: Female
  Weight: 77.1 kg

DRUGS (6)
  1. CONTRAVE [Suspect]
     Active Substance: BUPROPION HYDROCHLORIDE\NALTREXONE HYDROCHLORIDE
     Indication: FOOD CRAVING
     Dosage: ONE TABLET AM, ONE TABLET PM
     Route: 048
     Dates: start: 201909, end: 201909
  2. PANTOPRAZOLE [Concomitant]
     Active Substance: PANTOPRAZOLE
     Indication: GASTROINTESTINAL DISORDER
     Dosage: 40 MG, DAILY (STARTED 4 OR 5 YEARS AGO)
     Route: 048
  3. METHIMAZOLE. [Concomitant]
     Active Substance: METHIMAZOLE
     Indication: THYROID DISORDER
     Dosage: 10 MG FIVE DAYS A WEEK
     Route: 048
     Dates: start: 2000
  4. DULOXETINE. [Concomitant]
     Active Substance: DULOXETINE
     Indication: ARTHRITIS
     Dosage: 60 MG DAILY (STARTED 5 OR 8 YEARS AGO)
     Route: 048
  5. CONTRAVE [Suspect]
     Active Substance: BUPROPION HYDROCHLORIDE\NALTREXONE HYDROCHLORIDE
     Indication: WEIGHT CONTROL
     Dosage: ONE TABLET DAILY
     Route: 048
     Dates: start: 20190828, end: 201909
  6. CONTRAVE [Suspect]
     Active Substance: BUPROPION HYDROCHLORIDE\NALTREXONE HYDROCHLORIDE
     Dosage: ONE TABLET AT NIGHT
     Route: 048
     Dates: start: 201909, end: 201909

REACTIONS (2)
  - Tremor [Recovered/Resolved]
  - Muscular weakness [Recovered/Resolved]

NARRATIVE: CASE EVENT DATE: 201909
